FAERS Safety Report 7733040-5 (Version None)
Quarter: 2011Q3

REPORT INFORMATION
  Report Type: 
  Country: None (occurrence: None)
  Receive Date: 20110907
  Receipt Date: 20110826
  Transmission Date: 20111222
  Serious: Yes (Other)
  Sender: FDA-Public Use
  Company Number: US-JNJFOC-20110901006

PATIENT
  Age: 60 Year
  Sex: Male

DRUGS (78)
  1. DOXORUBICIN HCL [Suspect]
     Route: 042
  2. IFOSFAMIDE [Suspect]
     Route: 065
     Dates: start: 20060509
  3. IFOSFAMIDE [Suspect]
     Route: 065
     Dates: end: 20060823
  4. IFOSFAMIDE [Suspect]
     Route: 065
  5. MESNA [Suspect]
     Indication: METASTASES TO LUNG
     Route: 065
  6. SORAFENIB [Suspect]
     Route: 065
  7. DOXORUBICIN HCL [Suspect]
     Dosage: 6TH DOSE
     Route: 042
     Dates: end: 20080111
  8. MESNA [Suspect]
     Route: 065
  9. R1507 [Suspect]
     Indication: METASTASES TO LUNG
     Route: 065
     Dates: start: 20080318, end: 20080710
  10. SORAFENIB [Suspect]
     Route: 065
     Dates: end: 20090724
  11. DACARBAZINE [Suspect]
     Route: 065
  12. DACARBAZINE [Suspect]
     Route: 065
     Dates: start: 20090213
  13. DACARBAZINE [Suspect]
     Route: 065
  14. CYTOXAN [Suspect]
     Indication: METASTASES TO LUNG
     Route: 048
     Dates: start: 20110520, end: 20110617
  15. DOXORUBICIN HCL [Suspect]
     Dosage: 7TH DOSE
     Route: 042
     Dates: start: 20090814
  16. DOXORUBICIN HCL [Suspect]
     Route: 042
  17. DOXORUBICIN HCL [Suspect]
     Dosage: 7TH DOSE
     Route: 042
     Dates: start: 20090814
  18. IFOSFAMIDE [Suspect]
     Indication: METASTASES TO LUNG
     Route: 065
  19. MESNA [Suspect]
     Route: 065
  20. MESNA [Suspect]
     Route: 065
  21. MESNA [Suspect]
     Route: 065
     Dates: end: 20060823
  22. R1507 [Suspect]
     Indication: SYNOVIAL SARCOMA
     Route: 065
     Dates: start: 20080318, end: 20080710
  23. SORAFENIB [Suspect]
     Route: 065
     Dates: end: 20090724
  24. SORAFENIB [Suspect]
     Route: 065
  25. DACARBAZINE [Suspect]
     Indication: METASTASES TO LUNG
     Route: 065
  26. DACARBAZINE [Suspect]
     Route: 065
  27. CYTOXAN [Suspect]
     Indication: SYNOVIAL SARCOMA
     Route: 048
     Dates: start: 20110520, end: 20110617
  28. DOXORUBICIN HCL [Suspect]
     Dosage: 6TH DOSE
     Route: 042
     Dates: end: 20080111
  29. DOXORUBICIN HCL [Suspect]
     Route: 042
  30. MESNA [Suspect]
     Route: 065
  31. SORAFENIB [Suspect]
     Route: 065
     Dates: start: 20090213
  32. DACARBAZINE [Suspect]
     Route: 065
  33. DACARBAZINE [Suspect]
     Route: 065
  34. DOXORUBICIN HCL [Suspect]
     Route: 042
  35. IFOSFAMIDE [Suspect]
     Route: 065
  36. IFOSFAMIDE [Suspect]
     Indication: SYNOVIAL SARCOMA
     Route: 065
  37. MESNA [Suspect]
     Route: 065
     Dates: start: 20060509
  38. ANTHRACYCLINE [Suspect]
     Indication: SYNOVIAL SARCOMA
     Route: 065
  39. SORAFENIB [Suspect]
     Indication: SYNOVIAL SARCOMA
     Route: 065
  40. SORAFENIB [Suspect]
     Route: 065
  41. SORAFENIB [Suspect]
     Route: 065
  42. DOXORUBICIN HCL [Suspect]
     Indication: METASTASES TO LUNG
     Route: 042
  43. DOXORUBICIN HCL [Suspect]
     Indication: SYNOVIAL SARCOMA
     Route: 042
  44. IFOSFAMIDE [Suspect]
     Route: 065
     Dates: start: 20060509
  45. IFOSFAMIDE [Suspect]
     Route: 065
  46. IFOSFAMIDE [Suspect]
     Route: 065
  47. MESNA [Suspect]
     Route: 065
     Dates: start: 20060509
  48. MESNA [Suspect]
     Route: 065
     Dates: end: 20060823
  49. MESNA [Suspect]
     Route: 065
  50. SORAFENIB [Suspect]
     Route: 065
  51. SORAFENIB [Suspect]
     Route: 065
  52. DACARBAZINE [Suspect]
     Route: 065
  53. DACARBAZINE [Suspect]
     Route: 065
  54. DACARBAZINE [Suspect]
     Route: 065
     Dates: end: 20090724
  55. GEMZAR [Suspect]
     Indication: METASTASES TO LUNG
     Route: 065
     Dates: start: 20110520, end: 20110617
  56. GEMZAR [Suspect]
     Indication: SYNOVIAL SARCOMA
     Route: 065
     Dates: start: 20110520, end: 20110617
  57. DOXORUBICIN HCL [Suspect]
     Route: 042
     Dates: start: 20070824
  58. IFOSFAMIDE [Suspect]
     Route: 065
  59. MESNA [Suspect]
     Indication: SYNOVIAL SARCOMA
     Route: 065
  60. DACARBAZINE [Suspect]
     Route: 065
  61. DACARBAZINE [Suspect]
     Indication: SYNOVIAL SARCOMA
     Route: 065
  62. DACARBAZINE [Suspect]
     Route: 065
  63. DACARBAZINE [Suspect]
     Route: 065
     Dates: start: 20090213
  64. DOXORUBICIN HCL [Suspect]
     Route: 042
     Dates: start: 20070824
  65. DOXORUBICIN HCL [Suspect]
     Route: 042
  66. DOXORUBICIN HCL [Suspect]
     Route: 042
  67. IFOSFAMIDE [Suspect]
     Route: 065
  68. IFOSFAMIDE [Suspect]
     Route: 065
     Dates: end: 20060823
  69. MESNA [Suspect]
     Route: 065
  70. ANTHRACYCLINE [Suspect]
     Indication: METASTASES TO LUNG
     Route: 065
  71. SORAFENIB [Suspect]
     Indication: METASTASES TO LUNG
     Route: 065
     Dates: start: 20090213
  72. SORAFENIB [Suspect]
     Route: 065
  73. SORAFENIB [Suspect]
     Route: 065
  74. SORAFENIB [Suspect]
     Route: 065
  75. SORAFENIB [Suspect]
     Route: 065
  76. SORAFENIB [Suspect]
     Route: 065
  77. DACARBAZINE [Suspect]
     Route: 065
  78. DACARBAZINE [Suspect]
     Route: 065
     Dates: end: 20090724

REACTIONS (4)
  - HYPERTENSION [None]
  - RENAL FAILURE [None]
  - TYPE 2 DIABETES MELLITUS [None]
  - OFF LABEL USE [None]
